FAERS Safety Report 5709385-7 (Version None)
Quarter: 2008Q2

REPORT INFORMATION
  Report Type: 
  Country: None (occurrence: None)
  Receive Date: 20080417
  Receipt Date: 20080417
  Transmission Date: 20081010
  Serious: Yes (Disabling)
  Sender: FDA-Public Use
  Company Number: None

PATIENT
  Age: 63 Year
  Sex: Female
  Weight: 76.6579 kg

DRUGS (5)
  1. LIPITOR [Suspect]
     Indication: LOW DENSITY LIPOPROTEIN INCREASED
     Dosage: 20 MG 1 X DAY MOUTH CONTINUALY FOR 11 WEEKS ONLY.
     Route: 048
     Dates: start: 20050205, end: 20050414
  2. ESTRATEST [Concomitant]
  3. PROMETRIUM [Concomitant]
  4. CELEBREX [Concomitant]
  5. REPREDAIN [Concomitant]

REACTIONS (2)
  - NEUROPATHY PERIPHERAL [None]
  - TINNITUS [None]
